FAERS Safety Report 5158270-0 (Version None)
Quarter: 2006Q4

REPORT INFORMATION
  Report Type: 
  Country: None (occurrence: None)
  Receive Date: 20061121
  Receipt Date: 20061121
  Transmission Date: 20070319
  Serious: Yes (Hospitalization)
  Sender: FDA-Public Use
  Company Number: None

PATIENT
  Age: 75 Year
  Sex: Female

DRUGS (8)
  1. ATENOLOL [Suspect]
     Indication: HYPERTENSION
     Dosage: 50 MG OD PO
     Route: 048
  2. REQUIP [Suspect]
     Indication: RESTLESS LEGS SYNDROME
     Dosage: 1 MG QHS PO
     Route: 048
     Dates: start: 20050815, end: 20050829
  3. DYAZIDE [Concomitant]
  4. NORVASC [Concomitant]
  5. ZOCOR [Concomitant]
  6. ASPIRIN [Concomitant]
  7. CALCIUM [Concomitant]
  8. ACTOS [Concomitant]

REACTIONS (3)
  - BRADYCARDIA [None]
  - CHILLS [None]
  - NAUSEA [None]
